FAERS Safety Report 19106712 (Version 1)
Quarter: 2021Q2

REPORT INFORMATION
  Report Type: Spontaneous
  Country: US (occurrence: US)
  Receive Date: 20210407
  Receipt Date: 20210407
  Transmission Date: 20210717
  Serious: Yes (Other)
  Sender: FDA-Public Use
  Company Number: None

PATIENT
  Age: 72 Year
  Sex: Female

DRUGS (1)
  1. SALONPAS MEDICATION PAIN PATCH NOS [Suspect]
     Active Substance: CAMPHOR (NATURAL)\CAPSAICIN\MENTHOL\METHYL SALICYLATE

REACTIONS (4)
  - Insomnia [None]
  - Hypersensitivity [None]
  - Blister [None]
  - Pain [None]

NARRATIVE: CASE EVENT DATE: 20210402
